FAERS Safety Report 4531448-2 (Version None)
Quarter: 2004Q4

REPORT INFORMATION
  Report Type: 
  Country: None (occurrence: None)
  Receive Date: 20041216
  Receipt Date: 20041201
  Transmission Date: 20050328
  Serious: No
  Sender: FDA-Public Use
  Company Number: S04-USA-06697-01

PATIENT
  Age: 48 Year
  Sex: Male

DRUGS (3)
  1. LEXAPRO [Suspect]
     Indication: DEPRESSION
     Dosage: 10 MG QD PO
     Route: 048
     Dates: start: 20030401, end: 20040901
  2. LEXAPRO [Suspect]
     Indication: DEPRESSION
     Dosage: 10 MG QOD PO
     Route: 048
     Dates: start: 20040901, end: 20040901
  3. LEXAPRO [Suspect]
     Indication: DEPRESSION
     Dosage: 10 MG BIW PO
     Route: 048
     Dates: start: 20040901, end: 20041006

REACTIONS (8)
  - BLOOD CITRIC ACID INCREASED [None]
  - BLOOD CREATININE INCREASED [None]
  - CALCULUS URETERIC [None]
  - DIZZINESS [None]
  - HYPERCALCIURIA [None]
  - HYPEROXALURIA [None]
  - NEPHROLITHIASIS [None]
  - URINE OUTPUT INCREASED [None]
